FAERS Safety Report 7298837-7 (Version None)
Quarter: 2011Q1

REPORT INFORMATION
  Report Type: 
  Country: None (occurrence: None)
  Receive Date: 20110217
  Receipt Date: 20110208
  Transmission Date: 20110831
  Serious: Yes (Hospitalization)
  Sender: FDA-Public Use
  Company Number: FR-ROCHE-758930

PATIENT
  Sex: Male

DRUGS (6)
  1. FLUOROURACIL [Suspect]
     Dosage: FREQUENCY: CYCLE
     Route: 042
     Dates: start: 20101222, end: 20110105
  2. ZOPHREN [Concomitant]
  3. AVASTIN [Suspect]
     Dosage: FREQUENCY: CYCLE
     Route: 065
     Dates: start: 20101222, end: 20110105
  4. ELOXATIN [Suspect]
     Dosage: DOSE: ONCE, FREQUENCY: CYCLE
     Route: 042
     Dates: start: 20101222, end: 20110105
  5. METHYLPREDNISOLONE [Concomitant]
  6. CALCIUM FOLINATE [Concomitant]

REACTIONS (4)
  - HAPTOGLOBIN DECREASED [None]
  - CHILLS [None]
  - PYREXIA [None]
  - THROMBOCYTOPENIA [None]
